FAERS Safety Report 20961956 (Version 1)
Quarter: 2022Q2

REPORT INFORMATION
  Report Type: Report from Study
  Country: US (occurrence: US)
  Receive Date: 20220615
  Receipt Date: 20220615
  Transmission Date: 20220720
  Serious: Yes (Death, Other)
  Sender: FDA-Public Use
  Company Number: US-PFIZER INC-202200785198

PATIENT
  Age: 53 Year
  Sex: Male

DRUGS (1)
  1. INLYTA [Suspect]
     Active Substance: AXITINIB
     Indication: Renal cell carcinoma
     Dosage: 5 MG, 2X/DAY (1 TABLET)
     Dates: start: 20220506, end: 20220523

REACTIONS (1)
  - Death [Fatal]

NARRATIVE: CASE EVENT DATE: 20220523
